FAERS Safety Report 5663117-X (Version None)
Quarter: 2008Q1

REPORT INFORMATION
  Report Type: 
  Country: None (occurrence: None)
  Receive Date: 20080313
  Receipt Date: 20080303
  Transmission Date: 20080703
  Serious: Yes (Death, Hospitalization)
  Sender: FDA-Public Use
  Company Number: B0505685A

PATIENT
  Age: 74 Year
  Sex: Female
  Weight: 75 kg

DRUGS (10)
  1. ARIXTRA [Suspect]
     Indication: DEEP VEIN THROMBOSIS
     Dosage: 7.5MG PER DAY
     Route: 058
     Dates: start: 20071222, end: 20071227
  2. PREVISCAN [Suspect]
     Indication: DEEP VEIN THROMBOSIS
     Dosage: .75TAB AT NIGHT
     Route: 048
     Dates: start: 20071223, end: 20071227
  3. VASTAREL [Concomitant]
     Indication: DRUG USE FOR UNKNOWN INDICATION
  4. ATACAND [Concomitant]
     Indication: DRUG USE FOR UNKNOWN INDICATION
  5. LODALES [Concomitant]
     Indication: DRUG USE FOR UNKNOWN INDICATION
  6. ART 50 [Concomitant]
     Indication: DRUG USE FOR UNKNOWN INDICATION
  7. MOPRAL [Concomitant]
     Indication: DRUG USE FOR UNKNOWN INDICATION
  8. DOLIPRANE [Concomitant]
     Indication: DRUG USE FOR UNKNOWN INDICATION
  9. SIMVASTATIN [Concomitant]
     Indication: DRUG USE FOR UNKNOWN INDICATION
     Route: 065
  10. TORENTAL [Concomitant]
     Indication: DRUG USE FOR UNKNOWN INDICATION
     Route: 065

REACTIONS (10)
  - APHASIA [None]
  - BRAIN HERNIATION [None]
  - CEREBROVASCULAR ACCIDENT [None]
  - FALL [None]
  - HEMIPLEGIA [None]
  - HYPERTENSION [None]
  - INTRACRANIAL HAEMATOMA [None]
  - LOSS OF CONSCIOUSNESS [None]
  - PROTHROMBIN LEVEL DECREASED [None]
  - VOMITING [None]
